FAERS Safety Report 20039543 (Version 1)
Quarter: 2021Q4

REPORT INFORMATION
  Report Type: Spontaneous
  Country: US (occurrence: US)
  Receive Date: 20211106
  Receipt Date: 20211106
  Transmission Date: 20220303
  Serious: No
  Sender: FDA-Public Use
  Company Number: US-ALMIRALL, LLC-2020AQU000511

PATIENT

DRUGS (1)
  1. VERDESO [Suspect]
     Active Substance: DESONIDE
     Indication: Oral fungal infection
     Dosage: UNK, QAM
     Route: 061

REACTIONS (3)
  - Skin exfoliation [Recovering/Resolving]
  - Application site erythema [Not Recovered/Not Resolved]
  - Product use in unapproved indication [Unknown]
